FAERS Safety Report 18262861 (Version 1)
Quarter: 2020Q3

REPORT INFORMATION
  Report Type: Spontaneous
  Country: US (occurrence: US)
  Receive Date: 20200914
  Receipt Date: 20200914
  Transmission Date: 20201103
  Serious: Yes (Life-Threatening, Disabling, Other)
  Sender: FDA-Public Use
  Company Number: None

PATIENT
  Age: 39 Year
  Sex: Female

DRUGS (2)
  1. INVEGA SUSTENNA [Suspect]
     Active Substance: PALIPERIDONE PALMITATE
     Indication: DRUG ABUSE
     Dosage: ?          OTHER FREQUENCY:MONTHLY;?
     Route: 030
     Dates: start: 20150127, end: 20200913
  2. INVEGA [Suspect]
     Active Substance: PALIPERIDONE

REACTIONS (29)
  - Mental disorder [None]
  - Muscular weakness [None]
  - Pollakiuria [None]
  - Increased appetite [None]
  - Nasal dryness [None]
  - Pruritus [None]
  - Memory impairment [None]
  - Irritability [None]
  - Gastrointestinal inflammation [None]
  - Heart rate irregular [None]
  - Affective disorder [None]
  - Muscle spasms [None]
  - Discomfort [None]
  - Dyspnoea [None]
  - Amnesia [None]
  - Presenile dementia [None]
  - Bone disorder [None]
  - Osteoporosis [None]
  - Abdominal distension [None]
  - Weight increased [None]
  - Mental impairment [None]
  - Confusional state [None]
  - Flatulence [None]
  - Chest pain [None]
  - Dysmorphism [None]
  - Abortion spontaneous [None]
  - Premenstrual syndrome [None]
  - Obesity [None]
  - Disturbance in attention [None]

NARRATIVE: CASE EVENT DATE: 20150115
